FAERS Safety Report 19262446 (Version 6)
Quarter: 2021Q3

REPORT INFORMATION
  Report Type: Spontaneous
  Country: US (occurrence: US)
  Receive Date: 20210517
  Receipt Date: 20210730
  Transmission Date: 20211014
  Serious: No
  Sender: FDA-Public Use
  Company Number: US-SA-2021SA161273

PATIENT
  Age: 61 Year
  Sex: Female

DRUGS (2)
  1. DUPIXENT [Suspect]
     Active Substance: DUPILUMAB
     Indication: RASH
     Dosage: UNK
     Route: 065
     Dates: start: 2020
  2. DUPIXENT [Suspect]
     Active Substance: DUPILUMAB
     Indication: EPIDERMOLYSIS
     Dosage: 300 MG, QOW
     Route: 058
     Dates: start: 20210511

REACTIONS (8)
  - Eye swelling [Not Recovered/Not Resolved]
  - Abdominal pain upper [Unknown]
  - Hordeolum [Not Recovered/Not Resolved]
  - Lacrimal structure injury [Unknown]
  - Product use in unapproved indication [Unknown]
  - Dry eye [Not Recovered/Not Resolved]
  - Eye infection [Unknown]
  - Pain in extremity [Unknown]

NARRATIVE: CASE EVENT DATE: 2020
